FAERS Safety Report 6105081-5 (Version None)
Quarter: 2009Q1

REPORT INFORMATION
  Report Type: 
  Country: None (occurrence: None)
  Receive Date: 20090306
  Receipt Date: 20090226
  Transmission Date: 20090719
  Serious: Yes (Death, Other)
  Sender: FDA-Public Use
  Company Number: US-JNJFOC-20041103698

PATIENT
  Sex: Male
  Weight: 99.79 kg

DRUGS (10)
  1. DURAGESIC-100 [Suspect]
     Route: 062
  2. DURAGESIC-100 [Suspect]
     Route: 062
  3. DURAGESIC-100 [Suspect]
     Indication: PAIN
     Route: 062
  4. HYDROMORPHONE HCL [Concomitant]
     Route: 048
  5. HYDROMORPHONE HCL [Concomitant]
     Indication: POSTOPERATIVE ANALGESIA
     Route: 048
  6. HYDROMORPHONE HCL [Concomitant]
     Indication: BREAKTHROUGH PAIN
     Dosage: SIX 2 MG TABLETS IN LESS THAN 24 HOURS
     Route: 048
  7. CANNABIS [Concomitant]
  8. ALCOHOL [Concomitant]
  9. OXYCODONE [Concomitant]
  10. MORPHINE [Concomitant]

REACTIONS (5)
  - DEVICE LEAKAGE [None]
  - DRUG ABUSE [None]
  - DRUG TOXICITY [None]
  - OFF LABEL USE [None]
  - VOMITING [None]
